FAERS Safety Report 20852399 (Version 1)
Quarter: 2022Q2

REPORT INFORMATION
  Report Type: Report from Study
  Country: US (occurrence: None)
  Receive Date: 20220520
  Receipt Date: 20220520
  Transmission Date: 20220721
  Serious: Yes (Death, Hospitalization)
  Sender: FDA-Public Use
  Company Number: US-ROCHE-1338652

PATIENT
  Age: 71 Year
  Sex: Female
  Weight: 64.86 kg

DRUGS (7)
  1. CARBOPLATIN [Suspect]
     Active Substance: CARBOPLATIN
     Indication: Ovarian epithelial cancer
     Dosage: LAST DOSE ADMINISTERED 03/JAN/2013, TOTAL DOSE ADMINISTERED 0 MG, AUC 5
     Route: 042
     Dates: start: 20120827
  2. PACLITAXEL [Suspect]
     Active Substance: PACLITAXEL
     Indication: Ovarian epithelial cancer
     Dosage: LAST DOSE ADMINISTERED 03/JAN/2013, TOTAL DOSE ADMINISTERED 0 MG
     Route: 042
     Dates: start: 20120827
  3. CYCLOPHOSPHAMIDE [Suspect]
     Active Substance: CYCLOPHOSPHAMIDE
     Indication: Fallopian tube cancer
     Route: 065
  4. CISPLATIN [Suspect]
     Active Substance: CISPLATIN
     Indication: Fallopian tube cancer
     Route: 065
  5. CYTOXAN [Suspect]
     Active Substance: CYCLOPHOSPHAMIDE
     Indication: Fallopian tube cancer
     Route: 048
     Dates: start: 20151214
  6. BEVACIZUMAB [Suspect]
     Active Substance: BEVACIZUMAB
     Indication: Fallopian tube cancer
     Dosage: TOTAL DOSE ADMINISTERED 990 MG, OVER 30-90 MIN ON DAY 1 OF CYCLE 2)
     Route: 042
     Dates: start: 20120827
  7. TOPROL XL [Concomitant]
     Active Substance: METOPROLOL SUCCINATE

REACTIONS (4)
  - Cardiac failure [Recovered/Resolved]
  - Left ventricular dysfunction [Not Recovered/Not Resolved]
  - Hypertension [Recovered/Resolved]
  - Second primary malignancy [Fatal]

NARRATIVE: CASE EVENT DATE: 20131121
